FAERS Safety Report 7103098-5 (Version None)
Quarter: 2010Q4

REPORT INFORMATION
  Report Type: 
  Country: None (occurrence: None)
  Receive Date: 20101115
  Receipt Date: 20080523
  Transmission Date: 20110411
  Serious: No
  Sender: FDA-Public Use
  Company Number: US-KINGPHARMUSA00001-K200800616

PATIENT
  Sex: Female

DRUGS (5)
  1. INTAL [Suspect]
     Indication: ASTHMA
     Dosage: 2 PUFFS 2 TO 3 TIMES A DAY
     Dates: start: 20080518
  2. NSAID'S [Concomitant]
  3. SINGULAIR [Concomitant]
     Indication: ASTHMA
  4. PROVENTIL                          /00139501/ [Concomitant]
     Indication: ASTHMA
  5. UNSPECIFIED ^EYE MEDS^ [Concomitant]

REACTIONS (1)
  - PRURITUS GENERALISED [None]
